FAERS Safety Report 20802602 (Version 1)
Quarter: 2022Q2

REPORT INFORMATION
  Report Type: Spontaneous
  Country: US (occurrence: None)
  Receive Date: 20220509
  Receipt Date: 20220509
  Transmission Date: 20220721
  Serious: Yes (Hospitalization)
  Sender: FDA-Public Use
  Company Number: None

PATIENT
  Age: 74 Year
  Sex: Male
  Weight: 86.64 kg

DRUGS (1)
  1. EMPAGLIFLOZIN [Suspect]
     Active Substance: EMPAGLIFLOZIN
     Indication: Diabetes mellitus
     Dosage: OTHER QUANTITY : 1.25 MG;?FREQUENCY : DAILY;?
     Route: 048
     Dates: start: 20220118, end: 20220302

REACTIONS (4)
  - Urinary tract infection [None]
  - Acute kidney injury [None]
  - Hypotension [None]
  - Hypovolaemia [None]

NARRATIVE: CASE EVENT DATE: 20220210
